FAERS Safety Report 7480832-6 (Version None)
Quarter: 2011Q2

REPORT INFORMATION
  Report Type: 
  Country: None (occurrence: None)
  Receive Date: 20110506
  Receipt Date: 20110420
  Transmission Date: 20111010
  Serious: Yes (Death)
  Sender: FDA-Public Use
  Company Number: US-2011-10258

PATIENT

DRUGS (2)
  1. BUSULFAN [Suspect]
     Indication: STEM CELL TRANSPLANT
  2. ANTI-THYMOCYTE GLOBULIN (ANTI-THYMOCYTE GLOBULIN) [Concomitant]

REACTIONS (4)
  - CORD BLOOD TRANSPLANT THERAPY [None]
  - ENGRAFT FAILURE [None]
  - ADENOVIRUS INFECTION [None]
  - SURGICAL PROCEDURE REPEATED [None]
